FAERS Safety Report 10138555 (Version 1)
Quarter: 2014Q2

REPORT INFORMATION
  Report Type: Spontaneous
  Country: US (occurrence: US)
  Receive Date: 20140429
  Receipt Date: 20140429
  Transmission Date: 20141212
  Serious: No
  Sender: FDA-Public Use
  Company Number: US-PFIZER INC-2014114781

PATIENT
  Sex: Female

DRUGS (5)
  1. ZITHROMAX [Suspect]
     Dosage: UNK
  2. IODINE [Suspect]
     Dosage: UNK
  3. NIACIN [Suspect]
     Dosage: UNK
  4. TETANUS [Suspect]
     Dosage: UNK
  5. PENICILLIN [Suspect]
     Dosage: UNK

REACTIONS (1)
  - Drug hypersensitivity [Unknown]
